FAERS Safety Report 10373931 (Version 1)
Quarter: 2014Q1

REPORT INFORMATION
  Report Type: Spontaneous
  Country: US (occurrence: None)
  Receive Date: 20140306
  Receipt Date: 20140306
  Transmission Date: 20141002
  Serious: Yes (Hospitalization, Other)
  Sender: FDA-Public Use
  Company Number: 163-21880-13013125

PATIENT
  Age: 71 Year
  Sex: Female

DRUGS (2)
  1. REVLIMID [Suspect]
     Indication: PLASMA CELL MYELOMA
     Dosage: OCT-2012 - DISCONTINUED?25 MG, 21 IN 21 D, PO
     Route: 048
     Dates: start: 201210
  2. VELCADE [Suspect]
     Indication: PRODUCT USED FOR UNKNOWN INDICATION
     Dosage: UNK?UNKNOWN - UNKNOWN

REACTIONS (6)
  - Spinal fracture [None]
  - Fall [None]
  - Neuropathy peripheral [None]
  - Pain in extremity [None]
  - Pyrexia [None]
  - Bone disorder [None]
